FAERS Safety Report 10568225 (Version 1)
Quarter: 2014Q4

REPORT INFORMATION
  Report Type: Spontaneous
  Country: JP (occurrence: None)
  Receive Date: 20141104
  Receipt Date: 20141104
  Transmission Date: 20150529
  Serious: Yes (Life-Threatening)
  Sender: FDA-Public Use
  Company Number: JP2014JPN009806

PATIENT
  Age: 49 Year
  Sex: Male

DRUGS (5)
  1. E KEPPRA (LEVETIRACETAM) [Concomitant]
  2. PAXIL [Suspect]
     Active Substance: PAROXETINE HYDROCHLORIDE
     Indication: BIPOLAR II DISORDER
     Route: 048
     Dates: start: 200804, end: 201110
  3. RIVOTRIL [Concomitant]
     Active Substance: CLONAZEPAM
  4. SEROQUEL [Concomitant]
     Active Substance: QUETIAPINE FUMARATE
  5. CATAPRES (CLONIDINE) [Concomitant]

REACTIONS (10)
  - Generalised tonic-clonic seizure [None]
  - Seizure [None]
  - Headache [None]
  - Epilepsy [None]
  - Altered state of consciousness [None]
  - Disorientation [None]
  - Somnolence [None]
  - Aura [None]
  - Epileptic aura [None]
  - Blood electrolytes abnormal [None]

NARRATIVE: CASE EVENT DATE: 200910
